FAERS Safety Report 6132637-6 (Version None)
Quarter: 2009Q1

REPORT INFORMATION
  Report Type: 
  Country: None (occurrence: None)
  Receive Date: 20090324
  Receipt Date: 20090313
  Transmission Date: 20090719
  Serious: Yes (Hospitalization, Other)
  Sender: FDA-Public Use
  Company Number: PAR_02885_2009

PATIENT
  Age: 44 Year
  Sex: Female

DRUGS (7)
  1. ONDANSETRON [Suspect]
     Indication: PROPHYLAXIS OF NAUSEA AND VOMITING
     Dosage: (8 MG, IN DIVIDED DOSES, AT THE BEGINNING AND END OF SURGERY INTRAVENOUS (NOT OTHERWISE SPECIFIED)
     Route: 042
  2. PROPOFOL [Concomitant]
  3. MIDAZOLAM HCL [Concomitant]
  4. SUCCINYLCHOLINE CHLORIDE [Concomitant]
  5. FENTANYL-25 [Concomitant]
  6. ISOFLURANE [Concomitant]
  7. HYDROMORPHONE HCL [Concomitant]

REACTIONS (10)
  - DRUG INEFFECTIVE [None]
  - DYSTONIA [None]
  - EXTRAPYRAMIDAL DISORDER [None]
  - FACIAL SPASM [None]
  - HYPERHIDROSIS [None]
  - HYPERVENTILATION [None]
  - HYPOCALCAEMIA [None]
  - OCULOGYRIC CRISIS [None]
  - TETANY [None]
  - TREMOR [None]
